FAERS Safety Report 11879566 (Version 4)
Quarter: 2016Q1

REPORT INFORMATION
  Report Type: Spontaneous
  Country: US (occurrence: US)
  Receive Date: 20151230
  Receipt Date: 20160304
  Transmission Date: 20160526
  Serious: No
  Sender: FDA-Public Use
  Company Number: US-PFIZER INC-2015460135

PATIENT
  Age: 14 Year
  Sex: Male
  Weight: 84 kg

DRUGS (2)
  1. GENOTROPIN [Suspect]
     Active Substance: SOMATROPIN
     Dosage: UNK
  2. GENOTROPIN [Suspect]
     Active Substance: SOMATROPIN
     Indication: HYPOPITUITARISM
     Dosage: 1 DF, 1X/DAY, 7 DAYS A WEEK
     Route: 058
     Dates: start: 20151119

REACTIONS (1)
  - Pyrexia [Unknown]

NARRATIVE: CASE EVENT DATE: 20151217
